FAERS Safety Report 25380666 (Version 1)
Quarter: 2025Q2

REPORT INFORMATION
  Report Type: Spontaneous
  Country: US (occurrence: US)
  Receive Date: 20250530
  Receipt Date: 20250530
  Transmission Date: 20250716
  Serious: No
  Sender: ROCHE
  Company Number: US-ROCHE-10000291349

PATIENT
  Age: 62 Year
  Sex: Female

DRUGS (12)
  1. COTELLIC [Suspect]
     Active Substance: COBIMETINIB FUMARATE
     Indication: Rosai-Dorfman syndrome
     Route: 048
     Dates: start: 202412
  2. ADVIL [Concomitant]
     Active Substance: IBUPROFEN
  3. ALBUTEROL SULFATE [Concomitant]
     Active Substance: ALBUTEROL SULFATE
  4. BACLOFEN [Concomitant]
     Active Substance: BACLOFEN
  5. BISOPROLOL [Concomitant]
     Active Substance: BISOPROLOL
  6. BREZTRI AEROSPHERE [BUDESONIDE;FORMOTEROL FUMARATE DIHYDRATE;GLYCOPYRR [Concomitant]
  7. CETIRIZINE [Concomitant]
     Active Substance: CETIRIZINE HYDROCHLORIDE
  8. CLOBETASOL [Concomitant]
     Active Substance: CLOBETASOL
  9. DULOXETINE [Concomitant]
     Active Substance: DULOXETINE
  10. MELOXICAM [Concomitant]
     Active Substance: MELOXICAM
  11. METAXALONE [Concomitant]
     Active Substance: METAXALONE
  12. METFORMIN [Concomitant]
     Active Substance: METFORMIN HYDROCHLORIDE

REACTIONS (1)
  - Epistaxis [Unknown]
